FAERS Safety Report 5628142-3 (Version None)
Quarter: 2008Q1

REPORT INFORMATION
  Report Type: 
  Country: None (occurrence: None)
  Receive Date: 20080215
  Receipt Date: 20080206
  Transmission Date: 20080703
  Serious: Yes (Death)
  Sender: FDA-Public Use
  Company Number: US-ELI_LILLY_AND_COMPANY-US200802001320

PATIENT
  Age: 50 Year
  Sex: Male

DRUGS (2)
  1. ALIMTA [Suspect]
     Indication: SQUAMOUS CELL CARCINOMA
  2. GEMZAR [Suspect]
     Indication: SQUAMOUS CELL CARCINOMA

REACTIONS (1)
  - DEATH [None]
